FAERS Safety Report 8299687-5 (Version None)
Quarter: 2012Q2

REPORT INFORMATION
  Report Type: 
  Country: None (occurrence: None)
  Receive Date: 20120419
  Receipt Date: 20120407
  Transmission Date: 20120825
  Serious: Yes (Hospitalization)
  Sender: FDA-Public Use
  Company Number: JP-ELI_LILLY_AND_COMPANY-JP201111001672

PATIENT
  Age: 78 Year
  Sex: Female

DRUGS (1)
  1. FORTEO [Suspect]
     Dosage: UNK
     Route: 058
     Dates: start: 20111004, end: 20120312

REACTIONS (12)
  - ABDOMINAL DISTENSION [None]
  - RASH [None]
  - PAIN IN EXTREMITY [None]
  - BONE PAIN [None]
  - INJECTION SITE HAEMATOMA [None]
  - EYE INFLAMMATION [None]
  - LOOSE TOOTH [None]
  - PAIN [None]
  - HEADACHE [None]
  - EXPIRED DRUG ADMINISTERED [None]
  - NASOPHARYNGITIS [None]
  - WHITE BLOOD CELL COUNT INCREASED [None]
